FAERS Safety Report 8281004-8 (Version None)
Quarter: 2012Q2

REPORT INFORMATION
  Report Type: 
  Country: None (occurrence: None)
  Receive Date: 20120412
  Receipt Date: 20120405
  Transmission Date: 20120825
  Serious: Yes (Hospitalization)
  Sender: FDA-Public Use
  Company Number: ZA-ABBOTT-12P-143-0922031-00

PATIENT
  Age: 58 Year
  Sex: Female

DRUGS (5)
  1. LIOTHYRONINE SODIUM [Suspect]
     Indication: WEIGHT CONTROL
  2. HYDROCHLOROTHIAZIDE [Suspect]
     Indication: WEIGHT CONTROL
  3. METFORMIN HCL [Suspect]
     Indication: WEIGHT CONTROL
  4. BLADDERWRACK [Suspect]
     Indication: WEIGHT CONTROL
  5. SIBUTRAMINE HYDROCHLORIDE MONOHYDRATE [Suspect]
     Indication: WEIGHT CONTROL

REACTIONS (4)
  - CARDIAC FAILURE [None]
  - ATRIAL FIBRILLATION [None]
  - ARRHYTHMIA [None]
  - CARDIOMYOPATHY [None]
